FAERS Safety Report 20598806 (Version 1)
Quarter: 2022Q1

REPORT INFORMATION
  Report Type: Report from Study
  Country: US (occurrence: US)
  Receive Date: 20220315
  Receipt Date: 20220315
  Transmission Date: 20220423
  Serious: Yes (Other)
  Sender: FDA-Public Use
  Company Number: US-BRISTOL-MYERS SQUIBB COMPANY-BMS-2022-039304

PATIENT
  Sex: Male

DRUGS (1)
  1. APIXABAN [Suspect]
     Active Substance: APIXABAN
     Indication: Embolism venous
     Dosage: UNK
     Route: 065

REACTIONS (4)
  - Atrial fibrillation [Unknown]
  - Cardiac failure congestive [Unknown]
  - Pulmonary embolism [Unknown]
  - Myocardial infarction [Unknown]
